FAERS Safety Report 21735034 (Version 6)
Quarter: 2025Q2

REPORT INFORMATION
  Report Type: Spontaneous
  Country: US (occurrence: US)
  Receive Date: 20221215
  Receipt Date: 20250417
  Transmission Date: 20250717
  Serious: Yes (Other)
  Sender: PFIZER
  Company Number: US-PFIZER INC-PV202200122987

PATIENT
  Age: 88 Year
  Sex: Female
  Weight: 58.957 kg

DRUGS (1)
  1. PREMARIN [Suspect]
     Active Substance: ESTROGENS, CONJUGATED
     Indication: Hysterectomy
     Dates: start: 1994

REACTIONS (6)
  - Hip fracture [Recovering/Resolving]
  - Off label use [Unknown]
  - Therapeutic response unexpected [Unknown]
  - Energy increased [Unknown]
  - Feeling abnormal [Unknown]
  - Fatigue [Unknown]
